FAERS Safety Report 23266011 (Version 1)
Quarter: 2023Q4

REPORT INFORMATION
  Report Type: Spontaneous
  Country: JP (occurrence: JP)
  Receive Date: 20231206
  Receipt Date: 20231206
  Transmission Date: 20240110
  Serious: Yes (Other)
  Sender: FDA-Public Use
  Company Number: JP-GILEAD-2023-0652734

PATIENT
  Age: 71 Year
  Sex: Female

DRUGS (2)
  1. VEMLIDY [Suspect]
     Active Substance: TENOFOVIR ALAFENAMIDE FUMARATE
     Indication: Hepatic cirrhosis
     Dosage: UNK
     Route: 048
  2. ENTECAVIR [Concomitant]
     Active Substance: ENTECAVIR
     Indication: Hepatic cirrhosis
     Dosage: UNK

REACTIONS (3)
  - Hepatocellular carcinoma [Unknown]
  - Metastases to lung [Unknown]
  - Hepatocellular carcinoma [Unknown]
